FAERS Safety Report 9700148 (Version 1)
Quarter: 2013Q4

REPORT INFORMATION
  Report Type: Spontaneous
  Country: DE (occurrence: DE)
  Receive Date: 20131121
  Receipt Date: 20131121
  Transmission Date: 20140711
  Serious: Yes (Other)
  Sender: FDA-Public Use
  Company Number: DE-JNJFOC-20131110697

PATIENT
  Age: 74 Year
  Sex: Male

DRUGS (14)
  1. XARELTO [Suspect]
     Indication: PRODUCT USED FOR UNKNOWN INDICATION
     Route: 048
  2. NEBIVOLOL [Concomitant]
     Indication: BLOOD PRESSURE MANAGEMENT
     Route: 065
  3. SIMVASTATIN [Concomitant]
     Indication: LIPIDS ABNORMAL
     Route: 065
  4. COLCHICINE [Concomitant]
     Route: 065
  5. XELEVIA [Concomitant]
     Indication: DIABETES MELLITUS
     Route: 065
  6. SPIRIVA [Concomitant]
     Indication: LUNG DISORDER
     Route: 065
  7. CLONIDINE [Concomitant]
     Dosage: IN THE MORNING AND EVENING
     Route: 065
  8. FLUTICASONE PROPIONATE W/SALMETEROL [Concomitant]
     Dosage: IN THE MORNING AND EVENING
     Route: 065
  9. DEKRISTOL [Concomitant]
     Dosage: EVERY 6 WEEKS
     Route: 065
  10. FINASTERIDE [Concomitant]
     Indication: PROSTATIC DISORDER
     Route: 065
  11. FEBUXOSTAT [Concomitant]
     Route: 065
  12. TORASEMID [Concomitant]
     Route: 065
  13. FALITHROM [Concomitant]
     Route: 065
  14. CLAVERSAL [Concomitant]
     Indication: GASTROINTESTINAL DISORDER
     Route: 065

REACTIONS (5)
  - Epistaxis [Recovered/Resolved]
  - Blood count abnormal [Unknown]
  - Rash [Unknown]
  - Renal impairment [Unknown]
  - General physical health deterioration [Unknown]
